FAERS Safety Report 25155972 (Version 5)
Quarter: 2025Q4

REPORT INFORMATION
  Report Type: Report from Study
  Country: CO (occurrence: CO)
  Receive Date: 20250403
  Receipt Date: 20251112
  Transmission Date: 20260117
  Serious: Yes (Hospitalization)
  Sender: BIOGEN
  Company Number: CO-BIOGEN-2024BI01270051

PATIENT
  Age: 58 Year
  Sex: Female
  Weight: 49 kg

DRUGS (15)
  1. TYSABRI [Suspect]
     Active Substance: NATALIZUMAB
     Indication: Multiple sclerosis
     Dates: start: 20170116, end: 202401
  2. TYSABRI [Suspect]
     Active Substance: NATALIZUMAB
  3. TYSABRI [Suspect]
     Active Substance: NATALIZUMAB
     Dates: start: 202401, end: 20241029
  4. TYSABRI [Suspect]
     Active Substance: NATALIZUMAB
     Dosage: LAST ADMINISTRATION: OCTOBER 29, 2024
     Dates: start: 20170116, end: 20241029
  5. TRAZODONE [Concomitant]
     Active Substance: TRAZODONE HYDROCHLORIDE
     Indication: Sleep disorder
     Dosage: DOSAGE TEXT:START DATE ALSO REPORTED AS --2023
     Dates: start: 2016
  6. MODAFINIL [Concomitant]
     Active Substance: MODAFINIL
     Indication: Cerebral disorder
     Dates: start: 2016
  7. Vigia [Concomitant]
     Indication: Product used for unknown indication
  8. MEDROL [Concomitant]
     Active Substance: METHYLPREDNISOLONE
     Indication: Sleep disorder
     Dosage: DOSAGE TEXT:HALF DAILY
  9. MEDROL [Concomitant]
     Active Substance: METHYLPREDNISOLONE
     Indication: Multiple sclerosis
     Dosage: DOSAGE TEXT:FIVE(5) PULSES
  10. MEDROL [Concomitant]
     Active Substance: METHYLPREDNISOLONE
     Dosage: DOSAGE TEXT:HALF TABLET EVERY 24 HOURS
     Dates: start: 2014
  11. PROPANOL (PROPRANOLOL HYDROCHLORIDE) [Concomitant]
     Active Substance: PROPRANOLOL HYDROCHLORIDE
     Indication: Depression
     Dates: start: 2014
  12. PROPANOL (PROPRANOLOL HYDROCHLORIDE) [Concomitant]
     Active Substance: PROPRANOLOL HYDROCHLORIDE
     Dosage: DOSAGE TEXT:HALF EVERY DAY
  13. NITROFURANTOIN [Concomitant]
     Active Substance: NITROFURANTOIN
     Indication: Urinary tract infection
     Dates: start: 2021
  14. NITROFURANTOIN [Concomitant]
     Active Substance: NITROFURANTOIN
     Dates: start: 2016
  15. ATORVASTATIN [Concomitant]
     Active Substance: ATORVASTATIN
     Indication: Blood triglycerides increased
     Dates: start: 2014

REACTIONS (10)
  - Multiple sclerosis [Not Recovered/Not Resolved]
  - Pyrexia [Recovered/Resolved]
  - Dysphagia [Not Recovered/Not Resolved]
  - Weight decreased [Unknown]
  - General physical health deterioration [Not Recovered/Not Resolved]
  - Prescribed underdose [Recovered/Resolved]
  - Decreased appetite [Unknown]
  - Back pain [Recovered/Resolved]
  - Herpes zoster [Recovered/Resolved]
  - Cough [Not Recovered/Not Resolved]

NARRATIVE: CASE EVENT DATE: 20230101
